FAERS Safety Report 21671577 (Version 2)
Quarter: 2024Q1

REPORT INFORMATION
  Report Type: Report from Study
  Country: NL (occurrence: NL)
  Receive Date: 20221202
  Receipt Date: 20240228
  Transmission Date: 20240409
  Serious: Yes (Other)
  Sender: FDA-Public Use
  Company Number: None

PATIENT
  Age: 35 Year
  Sex: Female
  Weight: 77 kg

DRUGS (1)
  1. CLOZAPINE [Suspect]
     Active Substance: CLOZAPINE
     Indication: Schizophrenia
     Dosage: 1 PIECE ONCE PER DAY, BRAND NAME NOT SPECIFIED
     Route: 065
     Dates: start: 20190101

REACTIONS (2)
  - Apnoea [Unknown]
  - Snoring [Unknown]
